FAERS Safety Report 14220119 (Version 3)
Quarter: 2024Q2

REPORT INFORMATION
  Report Type: Spontaneous
  Country: US (occurrence: US)
  Receive Date: 20171123
  Receipt Date: 20240510
  Transmission Date: 20240716
  Serious: No
  Sender: FDA-Public Use
  Company Number: US-JNJFOC-20170924096

PATIENT
  Age: 17 Year
  Sex: Male

DRUGS (4)
  1. RISPERDAL [Suspect]
     Active Substance: RISPERIDONE
     Indication: Psychotic disorder
     Dosage: VARYING DOSES OF 0.25 MG, 0.50 MG, 1 MG, 1.5 MG, 2 MG AND 3 MG.
     Route: 048
     Dates: start: 20090312, end: 20090520
  2. RISPERDAL [Suspect]
     Active Substance: RISPERIDONE
     Indication: Aggression
  3. RISPERDAL [Suspect]
     Active Substance: RISPERIDONE
     Indication: Agitation
  4. RISPERIDONE [Suspect]
     Active Substance: RISPERIDONE
     Indication: Product used for unknown indication
     Route: 048
     Dates: start: 20090312, end: 20090520

REACTIONS (7)
  - Emotional distress [Unknown]
  - Gynaecomastia [Recovering/Resolving]
  - Sedation [Unknown]
  - Anxiety [Unknown]
  - Blood prolactin increased [Unknown]
  - Drug ineffective [Unknown]
  - Off label use [Unknown]

NARRATIVE: CASE EVENT DATE: 20090301
